FAERS Safety Report 5514350-9 (Version None)
Quarter: 2007Q4

REPORT INFORMATION
  Report Type: 
  Country: None (occurrence: None)
  Receive Date: 20071113
  Receipt Date: 20070419
  Transmission Date: 20080405
  Serious: No
  Sender: FDA-Public Use
  Company Number: A0648010A

PATIENT
  Age: 81 Year
  Sex: Female

DRUGS (5)
  1. COREG [Suspect]
     Indication: LEFT VENTRICULAR DYSFUNCTION
     Dosage: 12.5MG TWICE PER DAY
     Route: 048
     Dates: start: 20070324
  2. CARDIZEM [Concomitant]
  3. LIPITOR [Concomitant]
  4. SYNTHROID [Concomitant]
  5. ASPIRIN [Concomitant]

REACTIONS (2)
  - HEADACHE [None]
  - MUSCULOSKELETAL STIFFNESS [None]
